FAERS Safety Report 6915475-3 (Version None)
Quarter: 2010Q3

REPORT INFORMATION
  Report Type: 
  Country: None (occurrence: None)
  Receive Date: 20100809
  Receipt Date: 20100729
  Transmission Date: 20110219
  Serious: No
  Sender: FDA-Public Use
  Company Number: US-ABBOTT-10P-163-0661264-00

PATIENT
  Age: 57 Year
  Sex: Female

DRUGS (3)
  1. DEPAKOTE ER [Suspect]
     Indication: DELIRIUM
     Dates: start: 20100714, end: 20100728
  2. DEPAKOTE ER [Suspect]
     Dates: start: 20100728
  3. LITHIUM [Concomitant]
     Indication: PRODUCT USED FOR UNKNOWN INDICATION
     Dosage: DECREASING DOSE

REACTIONS (2)
  - AMMONIA INCREASED [None]
  - INSOMNIA [None]
